FAERS Safety Report 8609316-6 (Version None)
Quarter: 2012Q3

REPORT INFORMATION
  Report Type: 
  Country: None (occurrence: None)
  Receive Date: 20120821
  Receipt Date: 20120815
  Transmission Date: 20120928
  Serious: Yes (Other)
  Sender: FDA-Public Use
  Company Number: PHHY2012EC025179

PATIENT
  Sex: Female

DRUGS (1)
  1. EXFORGE [Suspect]
     Indication: HYPERTENSION
     Dosage: 1 TABLET (160/5 MG), DAILY
     Route: 048
     Dates: start: 20100125

REACTIONS (6)
  - ANKLE FRACTURE [None]
  - DISCOMFORT [None]
  - INFLUENZA [None]
  - FEELING ABNORMAL [None]
  - COUGH [None]
  - BRONCHITIS [None]
